FAERS Safety Report 4888705-X (Version None)
Quarter: 2005Q4

REPORT INFORMATION
  Report Type: 
  Country: None (occurrence: None)
  Receive Date: 20051215
  Receipt Date: 20041209
  Transmission Date: 20060501
  Serious: Yes (Hospitalization, Other)
  Sender: FDA-Public Use
  Company Number: 2004112721

PATIENT
  Sex: Male
  Weight: 92.9874 kg

DRUGS (1)
  1. BEXTRA [Suspect]
     Indication: BACK PAIN
     Dosage: 10 MG (10 MG, 1 IN 1D), ORAL
     Route: 048
     Dates: start: 20030101, end: 20030601

REACTIONS (4)
  - CHEST PAIN [None]
  - HYPERHIDROSIS [None]
  - HYPOAESTHESIA [None]
  - MYOCARDIAL INFARCTION [None]
